FAERS Safety Report 18953524 (Version 1)
Quarter: 2021Q1

REPORT INFORMATION
  Report Type: Spontaneous
  Country: JP (occurrence: JP)
  Receive Date: 20210301
  Receipt Date: 20210301
  Transmission Date: 20210420
  Serious: Yes (Hospitalization, Other)
  Sender: FDA-Public Use
  Company Number: JP-BAYER-2020-164915

PATIENT
  Age: 69 Year
  Sex: Male
  Weight: 64.7 kg

DRUGS (7)
  1. ALLOPURINOL. [Concomitant]
     Active Substance: ALLOPURINOL
     Dosage: DAILY DOSE 2 DF
     Route: 048
  2. CARVEDILOL. [Concomitant]
     Active Substance: CARVEDILOL
     Dosage: DAILY DOSE 1 DF
     Route: 048
  3. GLACTIV [Concomitant]
     Active Substance: SITAGLIPTIN
     Dosage: DAILY DOSE 1 DF
     Route: 048
  4. STIVARGA [Suspect]
     Active Substance: REGORAFENIB
     Indication: RECTAL CANCER
     Dosage: DAILY DOSE 160MG, ON FOR 3 WEEKS AND 1 WEEK OFF
     Dates: start: 20200709, end: 20200728
  5. VALSARTAN. [Concomitant]
     Active Substance: VALSARTAN
     Dosage: DAILY DOSE 1 DF
     Route: 048
  6. AMLODIPINE [Concomitant]
     Active Substance: AMLODIPINE BESYLATE
     Dosage: DAILY DOSE 5 MG
     Route: 048
  7. CILNIDIPINE [Concomitant]
     Active Substance: CILNIDIPINE
     Dosage: DAILY DOSE 1 DF
     Route: 048

REACTIONS (7)
  - Nephrotic syndrome [Recovering/Resolving]
  - Glomerular vascular disorder [None]
  - Palmar-plantar erythrodysaesthesia syndrome [None]
  - Hypoproteinaemia [Recovering/Resolving]
  - Hypercholesterolaemia [Recovering/Resolving]
  - Proteinuria [Recovering/Resolving]
  - Oedema [Recovering/Resolving]

NARRATIVE: CASE EVENT DATE: 20200728
